FAERS Safety Report 17909937 (Version 2)
Quarter: 2020Q2

REPORT INFORMATION
  Report Type: Spontaneous
  Country: JP (occurrence: JP)
  Receive Date: 20200617
  Receipt Date: 20200625
  Transmission Date: 20200714
  Serious: Yes (Death, Other)
  Sender: FDA-Public Use
  Company Number: JP-ELI_LILLY_AND_COMPANY-JP202006005840

PATIENT
  Age: 2 Month
  Sex: Male
  Weight: 3.94 kg

DRUGS (11)
  1. DOPAMINE [Concomitant]
     Active Substance: DOPAMINE HYDROCHLORIDE
     Dosage: UNK, UNKNOWN
     Route: 065
  2. NITRIC OXIDE. [Concomitant]
     Active Substance: NITRIC OXIDE
     Dosage: UNK, UNKNOWN
     Route: 065
  3. ADCIRCA [Suspect]
     Active Substance: TADALAFIL
     Indication: PULMONARY ARTERIAL HYPERTENSION
     Dosage: 1 MG/KG, DAILY
     Route: 048
     Dates: start: 20171213
  4. ADCIRCA [Suspect]
     Active Substance: TADALAFIL
     Dosage: 2 MG, DAILY
     Route: 048
  5. ADCIRCA [Suspect]
     Active Substance: TADALAFIL
     Dosage: 4 MG, DAILY
     Route: 048
     Dates: end: 20181111
  6. VOLIBRIS [Suspect]
     Active Substance: AMBRISENTAN
     Indication: PULMONARY ARTERIAL HYPERTENSION
     Dosage: 0.1 MG/KG, DAILY
     Route: 065
     Dates: start: 201712
  7. DOBUTAMINE [Concomitant]
     Active Substance: DOBUTAMINE HYDROCHLORIDE
     Dosage: UNK, UNKNOWN
     Route: 065
  8. FUROSEMIDE. [Concomitant]
     Active Substance: FUROSEMIDE
     Dosage: 1 MG/KG, UNKNOWN
     Route: 065
  9. OLPRINONE [Concomitant]
     Active Substance: OLPRINONE HYDROCHLORIDE
     Dosage: UNK, UNKNOWN
     Route: 065
  10. EPOPROSTENOL. [Concomitant]
     Active Substance: EPOPROSTENOL
     Indication: PULMONARY ARTERIAL HYPERTENSION
     Dosage: UNK, UNKNOWN
     Route: 065
  11. SPIRONOLACTONE. [Concomitant]
     Active Substance: SPIRONOLACTONE
     Dosage: 1 MG/KG, UNKNOWN
     Route: 065

REACTIONS (2)
  - Oedema [Fatal]
  - Pulmonary oedema [Fatal]
